FAERS Safety Report 5963790-2 (Version None)
Quarter: 2008Q4

REPORT INFORMATION
  Report Type: 
  Country: None (occurrence: None)
  Receive Date: 20081121
  Receipt Date: 20081121
  Transmission Date: 20090506
  Serious: No
  Sender: FDA-Public Use
  Company Number: None

PATIENT
  Age: 78 Year
  Sex: Male
  Weight: 59 kg

DRUGS (8)
  1. INSULIN ASPART [Suspect]
     Indication: TYPE 1 DIABETES MELLITUS
     Dosage: 0-4 SQ TID
     Route: 058
  2. LANTUS [Suspect]
     Indication: TYPE 1 DIABETES MELLITUS
     Dosage: 64 QHS
  3. DEXAMETHASONE [Concomitant]
  4. COLACE [Concomitant]
  5. NEUPOGEN [Concomitant]
  6. NYSTATIN [Concomitant]
  7. SIMVASTATIN [Concomitant]
  8. TEMAZEPAM [Concomitant]

REACTIONS (2)
  - BLOOD GLUCOSE DECREASED [None]
  - VISION BLURRED [None]
